FAERS Safety Report 24000712 (Version 1)
Quarter: 2024Q2

REPORT INFORMATION
  Report Type: Spontaneous
  Country: US (occurrence: US)
  Receive Date: 20240621
  Receipt Date: 20240621
  Transmission Date: 20240715
  Serious: No
  Sender: FDA-Public Use
  Company Number: US-PFIZER INC-202400197106

PATIENT
  Age: 81 Year
  Weight: 67.2 kg

DRUGS (4)
  1. TALZENNA [Interacting]
     Active Substance: TALAZOPARIB TOSYLATE
     Indication: Prostate cancer
     Dosage: 0.5MG TAKEN ORALLY ONCE DAILY. TAKE TALZENNA WITH OR WITHOUT FOOD. SWALLOW CAPSULE WHOLE.
     Route: 048
  2. TALZENNA [Interacting]
     Active Substance: TALAZOPARIB TOSYLATE
     Dosage: 0.25 MG, DAILY (MAY TAKE W/ OR W/O FOOD, SWALLOW CAPS WHOLE, DO NOT OPEN/DISSOLVE)
     Route: 048
  3. ATORVASTATIN [Interacting]
     Active Substance: ATORVASTATIN
     Dosage: UNK
  4. ENZALUTAMIDE [Concomitant]
     Active Substance: ENZALUTAMIDE
     Dosage: UNK

REACTIONS (1)
  - Drug interaction [Unknown]
